FAERS Safety Report 14704771 (Version 11)
Quarter: 2018Q4

REPORT INFORMATION
  Report Type: Spontaneous
  Country: IT (occurrence: IT)
  Receive Date: 20180402
  Receipt Date: 20181105
  Transmission Date: 20190204
  Serious: Yes (Other)
  Sender: FDA-Public Use
  Company Number: IT-OTSUKA-2017_024990

PATIENT
  Age: 47 Year
  Sex: Female

DRUGS (6)
  1. ARIPIPRAZOLE. [Suspect]
     Active Substance: ARIPIPRAZOLE
     Indication: MIGRAINE
     Dosage: 15 MG, QD
     Route: 065
     Dates: start: 20070101
  2. ARIPIPRAZOLE. [Suspect]
     Active Substance: ARIPIPRAZOLE
     Indication: MAJOR DEPRESSION
     Dosage: 15 MG, QD
     Route: 065
     Dates: start: 2010
  3. ARIPIPRAZOLE. [Suspect]
     Active Substance: ARIPIPRAZOLE
     Dosage: UNK (SHE ASSUMED ARIPIPRAZOLE IN A VERY IRREGULAR WAY)
     Route: 065
  4. FLUVOXAMINE [Concomitant]
     Active Substance: FLUVOXAMINE
     Indication: MAJOR DEPRESSION
     Dosage: 300 MG, UNK
     Route: 065
  5. LORAZEPAM. [Concomitant]
     Active Substance: LORAZEPAM
     Indication: MAJOR DEPRESSION
     Dosage: 2.5 MG, QD
     Route: 065
  6. ARIPIPRAZOLE. [Suspect]
     Active Substance: ARIPIPRAZOLE
     Dosage: 15 MG, QD
     Route: 065
     Dates: start: 20160101

REACTIONS (17)
  - Headache [Unknown]
  - Product use in unapproved indication [Unknown]
  - Body dysmorphic disorder [Recovered/Resolved]
  - Dysmetria [Recovered/Resolved]
  - Loss of personal independence in daily activities [Recovered/Resolved]
  - Illusion [Unknown]
  - Depersonalisation/derealisation disorder [Recovered/Resolved]
  - Aura [Recovered/Resolved]
  - Visual impairment [Recovered/Resolved]
  - Condition aggravated [Unknown]
  - Alice in wonderland syndrome [Recovered/Resolved]
  - Derealisation [Recovered/Resolved]
  - Migraine [Recovered/Resolved]
  - Time perception altered [Recovered/Resolved]
  - Apraxia [Unknown]
  - Psychiatric symptom [Unknown]
  - Inappropriate schedule of product administration [Unknown]

NARRATIVE: CASE EVENT DATE: 2010
